FAERS Safety Report 7328324-9 (Version None)
Quarter: 2011Q1

REPORT INFORMATION
  Report Type: 
  Country: None (occurrence: None)
  Receive Date: 20110303
  Receipt Date: 20110124
  Transmission Date: 20110831
  Serious: Yes (Hospitalization)
  Sender: FDA-Public Use
  Company Number: US-DENTSPLY-2003-0061-PRI

PATIENT
  Sex: Female
  Weight: 54 kg

DRUGS (3)
  1. XYLOCAINE W/ EPINEPHRINE [Suspect]
     Dates: start: 20021206, end: 20021206
  2. XYLOCAINE W/ EPINEPHRINE [Suspect]
     Dates: start: 20030103, end: 20030103
  3. XYLOCAINE W/ EPINEPHRINE [Suspect]
     Dates: start: 20030114, end: 20030114

REACTIONS (6)
  - EPILEPSY [None]
  - DYSPNOEA [None]
  - SPEECH DISORDER [None]
  - EXERCISE TOLERANCE DECREASED [None]
  - GAIT DISTURBANCE [None]
  - COGNITIVE DISORDER [None]
